FAERS Safety Report 8042326-9 (Version None)
Quarter: 2012Q1

REPORT INFORMATION
  Report Type: 
  Country: None (occurrence: None)
  Receive Date: 20120112
  Receipt Date: 20120105
  Transmission Date: 20120608
  Serious: Yes (Other)
  Sender: FDA-Public Use
  Company Number: JP-ROCHE-660295

PATIENT
  Sex: Female

DRUGS (16)
  1. ACTEMRA [Suspect]
     Route: 041
     Dates: start: 20090619, end: 20090619
  2. METHOTREXATE [Concomitant]
     Dosage: DOSE FORM: ORAL FORMULATION (NOT OTHERWISE SPECIFIED)
     Route: 048
  3. PREDNISOLONE [Concomitant]
     Dosage: DOSE FORM: ORAL FORMULATION (NOT OTHERWISE SPECIFIED)
     Route: 048
     Dates: start: 20081216, end: 20090326
  4. PREDNISOLONE [Concomitant]
     Dosage: DOSE FORM: ORAL FORMULATION (NOT OTHERWISE SPECIFIED)
     Route: 048
     Dates: start: 20090327, end: 20090422
  5. ACTEMRA [Suspect]
     Dates: start: 20100521, end: 20100730
  6. FOLIC ACID [Concomitant]
     Indication: PROPHYLAXIS
     Dosage: DOSE FORM: ORAL FORMULATION (NOT OTHERWISE SPECIFIED)
     Route: 048
  7. CELOXIB [Concomitant]
     Indication: RHEUMATOID ARTHRITIS
     Dosage: DRUG NAME REPORTED AS CELECOX
     Route: 048
  8. ACTEMRA [Suspect]
     Route: 041
     Dates: start: 20090522, end: 20090522
  9. ACTEMRA [Suspect]
     Route: 041
     Dates: start: 20090724, end: 20100326
  10. ACTEMRA [Suspect]
     Route: 041
     Dates: start: 20090327, end: 20090327
  11. ACTEMRA [Suspect]
     Route: 041
     Dates: start: 20090424, end: 20090424
  12. ACTEMRA [Suspect]
     Route: 041
     Dates: start: 20090227, end: 20090227
  13. PREDNISOLONE [Concomitant]
     Indication: RHEUMATOID ARTHRITIS
     Dosage: DOSE FORM: ORAL FORMULATION (NOT OTHERWISE SPECIFIED)
     Route: 048
  14. MYONAL [Concomitant]
     Indication: MUSCULOSKELETAL STIFFNESS
     Dosage: DOSE FORM: ORAL FORMULATION (NOT OTHERWISE SPECIFIED). DRUG NAME REPORTED AS EPERISONE HYDROCHLORIDE
     Route: 048
  15. ACTEMRA [Suspect]
     Indication: RHEUMATOID ARTHRITIS
     Route: 041
     Dates: start: 20090130, end: 20090130
  16. LANSOPRAZOLE [Concomitant]
     Indication: PROPHYLAXIS
     Dosage: DOSE FORM: ORAL FORMULATION (NOT OTHERWISE SPECIFIED)
     Route: 048

REACTIONS (1)
  - WHITE BLOOD CELL COUNT DECREASED [None]
